FAERS Safety Report 4921226-4 (Version None)
Quarter: 2006Q1

REPORT INFORMATION
  Report Type: 
  Country: None (occurrence: None)
  Receive Date: 20060224
  Receipt Date: 20060215
  Transmission Date: 20060701
  Serious: Yes (Other)
  Sender: FDA-Public Use
  Company Number: US-JNJFOC-20051103450

PATIENT
  Sex: Female
  Weight: 75.75 kg

DRUGS (8)
  1. REMICADE [Suspect]
     Route: 042
  2. REMICADE [Suspect]
     Indication: RHEUMATOID ARTHRITIS
     Dosage: 5 VIALS
     Route: 042
  3. METHOTREXATE [Concomitant]
  4. CELEBREX [Concomitant]
  5. FOLIC ACID [Concomitant]
  6. PERCOCET [Concomitant]
  7. PERCOCET [Concomitant]
  8. NEXIUM [Concomitant]

REACTIONS (2)
  - MYALGIA [None]
  - SYSTEMIC LUPUS ERYTHEMATOSUS [None]
